FAERS Safety Report 9761690 (Version 2)
Quarter: 2013Q4

REPORT INFORMATION
  Report Type: Spontaneous
  Country: US (occurrence: US)
  Receive Date: 20131216
  Receipt Date: 20131216
  Transmission Date: 20140711
  Serious: No
  Sender: FDA-Public Use
  Company Number: US-PFIZER INC-2013335088

PATIENT
  Sex: Male

DRUGS (1)
  1. PREMARIN [Suspect]
     Indication: EUSTACHIAN TUBE PATULOUS
     Dosage: 25 MG, UNK
     Route: 045

REACTIONS (2)
  - Intentional drug misuse [Unknown]
  - Drug ineffective [Unknown]
